FAERS Safety Report 11132500 (Version 1)
Quarter: 2015Q2

REPORT INFORMATION
  Report Type: Spontaneous
  Country: US (occurrence: US)
  Receive Date: 20150522
  Receipt Date: 20150522
  Transmission Date: 20150821
  Serious: Yes (Other)
  Sender: FDA-Public Use
  Company Number: US-RECKITT BENCKISER PHARMACEUTICAL, INC-RB-079401-2015

PATIENT
  Age: 29 Year
  Sex: Female

DRUGS (2)
  1. BUPRENORPHINE [Suspect]
     Active Substance: BUPRENORPHINE
     Indication: SELF INJURIOUS BEHAVIOUR
     Dosage: 2 MG, BID
     Route: 065
  2. BUPRENORPHINE [Suspect]
     Active Substance: BUPRENORPHINE
     Dosage: WITH A REDUCTION TO 2 MG DAILY

REACTIONS (3)
  - Off label use [Unknown]
  - Self injurious behaviour [Unknown]
  - Fatigue [Recovered/Resolved]
